FAERS Safety Report 21918872 (Version 1)
Quarter: 2023Q1

REPORT INFORMATION
  Report Type: Spontaneous
  Country: FR (occurrence: FR)
  Receive Date: 20230127
  Receipt Date: 20230127
  Transmission Date: 20230418
  Serious: Yes (Other)
  Sender: FDA-Public Use
  Company Number: FR-AFSSAPS-LM20222931

PATIENT
  Age: 22 Year
  Sex: Female

DRUGS (4)
  1. QUETIAPINE [Suspect]
     Active Substance: QUETIAPINE
     Indication: Product used for unknown indication
     Dosage: 300 MILLIGRAM, DAILY
     Route: 048
     Dates: start: 2018
  2. FLUOXETINE [Suspect]
     Active Substance: FLUOXETINE HYDROCHLORIDE
     Indication: Depression
     Dosage: 60 MILLIGRAM, DAILY
     Route: 048
     Dates: start: 2018
  3. PRAZEPAM [Suspect]
     Active Substance: PRAZEPAM
     Indication: Product used for unknown indication
     Dosage: 1 DOSAGE FORM, AS NECESSARY
     Route: 048
     Dates: start: 2018
  4. LAMOTRIGINE [Suspect]
     Active Substance: LAMOTRIGINE
     Indication: Product used for unknown indication
     Dosage: 175 MILLIGRAM, DAILY
     Route: 048
     Dates: start: 2018

REACTIONS (2)
  - Urinary incontinence [Not Recovered/Not Resolved]
  - Hypertonic bladder [Not Recovered/Not Resolved]

NARRATIVE: CASE EVENT DATE: 20200601
